FAERS Safety Report 9392074 (Version 1)
Quarter: 2013Q3

REPORT INFORMATION
  Report Type: Spontaneous
  Country: US (occurrence: US)
  Receive Date: 20130709
  Receipt Date: 20130709
  Transmission Date: 20140515
  Serious: Yes (Other)
  Sender: FDA-Public Use
  Company Number: US-GILEAD-2013-0071454

PATIENT
  Sex: Female

DRUGS (4)
  1. LETAIRIS [Suspect]
     Indication: PRODUCT USED FOR UNKNOWN INDICATION
     Dosage: 5 MG, UNK
     Route: 048
     Dates: start: 20100602
  2. LETAIRIS [Suspect]
     Dates: start: 20100603
  3. LETAIRIS [Suspect]
  4. ADCIRCA [Concomitant]

REACTIONS (3)
  - Lung disorder [Unknown]
  - Chemotherapy [Unknown]
  - Central venous catheterisation [Unknown]
